FAERS Safety Report 12425036 (Version 2)
Quarter: 2016Q2

REPORT INFORMATION
  Report Type: Spontaneous
  Country: JP (occurrence: JP)
  Receive Date: 20160601
  Receipt Date: 20160606
  Transmission Date: 20160815
  Serious: Yes (Other)
  Sender: FDA-Public Use
  Company Number: JP-009507513-1605JPN014666

PATIENT

DRUGS (2)
  1. STROMECTOL [Suspect]
     Active Substance: IVERMECTIN
     Indication: ACARODERMATITIS
     Dosage: DAILY DOSAGE UNKNOWN. THE FIRST ADMINISTRATION
     Route: 048
  2. STROMECTOL [Suspect]
     Active Substance: IVERMECTIN
     Dosage: DAILY DOSAGE UNKNOWN. THE SECOND ADMINISTRATION
     Route: 048
     Dates: start: 20160531, end: 20160531

REACTIONS (1)
  - Renal failure [Unknown]
